FAERS Safety Report 23632607 (Version 1)
Quarter: 2024Q1

REPORT INFORMATION
  Report Type: Spontaneous
  Country: SG (occurrence: SG)
  Receive Date: 20240314
  Receipt Date: 20240314
  Transmission Date: 20240410
  Serious: Yes (Other)
  Sender: FDA-Public Use
  Company Number: SG-BAYER-2024A034654

PATIENT

DRUGS (1)
  1. EYLEA [Suspect]
     Active Substance: AFLIBERCEPT
     Indication: Polypoidal choroidal vasculopathy
     Dosage: 2 MG,Q4-6 WEEKLY, SOLUTION FOR INJECTION, 40 MG/ML

REACTIONS (3)
  - Subretinal fluid [Recovered/Resolved with Sequelae]
  - Detachment of retinal pigment epithelium [Recovered/Resolved with Sequelae]
  - Drug ineffective [Recovering/Resolving]

NARRATIVE: CASE EVENT DATE: 20201125
